FAERS Safety Report 7028120-6 (Version None)
Quarter: 2010Q4

REPORT INFORMATION
  Report Type: 
  Country: None (occurrence: None)
  Receive Date: 20101005
  Receipt Date: 20100924
  Transmission Date: 20110411
  Serious: Yes (Hospitalization)
  Sender: FDA-Public Use
  Company Number: JP-JNJFOC-20100908402

PATIENT
  Sex: Male
  Weight: 90 kg

DRUGS (14)
  1. REMICADE [Suspect]
     Indication: BEHCET'S SYNDROME
  2. REMICADE [Suspect]
  3. REMICADE [Suspect]
  4. REMICADE [Suspect]
  5. REMICADE [Suspect]
  6. REMICADE [Suspect]
  7. REMICADE [Suspect]
     Dosage: 8 INFUSIONS TOTAL
  8. REMICADE [Suspect]
  9. SANDIMMUNE [Suspect]
     Indication: BEHCET'S SYNDROME
     Route: 048
  10. PREDNISOLONE [Concomitant]
     Indication: BEHCET'S SYNDROME
     Route: 048
  11. PREDNISOLONE [Concomitant]
     Route: 048
  12. ANTIHISTAMINES [Concomitant]
     Indication: PREMEDICATION
  13. XALATAN [Concomitant]
     Indication: BEHCET'S SYNDROME
     Dosage: BOTH EYES
     Route: 047
  14. BRONUCK [Concomitant]
     Indication: BEHCET'S SYNDROME
     Dosage: BOTH EYES
     Route: 047

REACTIONS (2)
  - LOSS OF CONSCIOUSNESS [None]
  - NEUROPATHY PERIPHERAL [None]
